FAERS Safety Report 8083801-0 (Version None)
Quarter: 2012Q1

REPORT INFORMATION
  Report Type: 
  Country: None (occurrence: None)
  Receive Date: 20120128
  Receipt Date: 20110201
  Transmission Date: 20120608
  Serious: No
  Sender: FDA-Public Use
  Company Number: US-ABBOTT-11P-163-0702226-00

PATIENT
  Age: 58 Year
  Sex: Male

DRUGS (5)
  1. HUMIRA [Suspect]
     Indication: PSORIATIC ARTHROPATHY
     Dates: start: 20090701, end: 20110101
  2. LIPITOR [Concomitant]
     Indication: BLOOD CHOLESTEROL DECREASED
  3. IBUPROFEN [Concomitant]
     Indication: HEADACHE
  4. IBUPROFEN [Concomitant]
     Indication: DRUG THERAPY
  5. HIGH BLOOD PRESSURE MEDICATION [Concomitant]
     Indication: HYPERTENSION

REACTIONS (2)
  - HEADACHE [None]
  - IMMUNOSUPPRESSION [None]
